FAERS Safety Report 4598238-6 (Version None)
Quarter: 2005Q1

REPORT INFORMATION
  Report Type: 
  Country: None (occurrence: None)
  Receive Date: 20050301
  Receipt Date: 20050301
  Transmission Date: 20050727
  Serious: Yes (Hospitalization)
  Sender: FDA-Public Use
  Company Number: None

PATIENT
  Sex: Male

DRUGS (13)
  1. WARFARIN [Suspect]
     Indication: ATRIAL FIBRILLATION
     Dosage: 2.5 MG DAILY ORAL
     Route: 048
  2. OXYCODONE HCL [Concomitant]
  3. BISACODYL [Concomitant]
  4. LACTOBACILLUS [Concomitant]
  5. PAROXETINE HCL [Concomitant]
  6. OMEPRAZOLE [Concomitant]
  7. NEPHROCAPS [Concomitant]
  8. METOPROLOL [Concomitant]
  9. FOLIC ACID [Concomitant]
  10. DOCUSATE [Concomitant]
  11. ASPIRIN [Concomitant]
  12. LACTULOSE [Concomitant]
  13. DM/GUAIFENESIN [Concomitant]

REACTIONS (2)
  - HAEMATEMESIS [None]
  - INTERNATIONAL NORMALISED RATIO INCREASED [None]
